FAERS Safety Report 6428512-X (Version None)
Quarter: 2009Q4

REPORT INFORMATION
  Report Type: 
  Country: None (occurrence: None)
  Receive Date: 20091104
  Receipt Date: 20091104
  Transmission Date: 20100525
  Serious: Yes (Hospitalization)
  Sender: FDA-Public Use
  Company Number: None

PATIENT
  Age: 54 Year
  Sex: Male

DRUGS (1)
  1. WARFARIN SODIUM [Suspect]
     Indication: INTRACARDIAC THROMBUS
     Dosage: 20 MG QWEEK PO
     Route: 048
     Dates: start: 20090407, end: 20090407

REACTIONS (2)
  - HAEMOPTYSIS [None]
  - HAEMORRHAGE [None]
